FAERS Safety Report 8308004-3 (Version None)
Quarter: 2012Q2

REPORT INFORMATION
  Report Type: 
  Country: None (occurrence: None)
  Receive Date: 20120424
  Receipt Date: 20120418
  Transmission Date: 20120825
  Serious: Yes (Hospitalization)
  Sender: FDA-Public Use
  Company Number: JP-GLAXOSMITHKLINE-B0797273A

PATIENT
  Sex: Female

DRUGS (8)
  1. CHINESE MEDICINE [Concomitant]
     Indication: SKIN COSMETIC PROCEDURE
     Route: 048
  2. JUVELA N [Concomitant]
     Indication: SKIN COSMETIC PROCEDURE
     Route: 048
  3. UNKNOWN DRUG [Concomitant]
     Indication: SKIN COSMETIC PROCEDURE
     Route: 065
  4. TRANSAMINE CAP [Concomitant]
     Indication: SKIN COSMETIC PROCEDURE
     Route: 065
  5. CINAL [Concomitant]
     Indication: SKIN COSMETIC PROCEDURE
     Route: 048
  6. ALOSENN [Concomitant]
     Indication: SKIN COSMETIC PROCEDURE
     Route: 048
  7. PYDOXAL [Concomitant]
     Indication: SKIN COSMETIC PROCEDURE
     Route: 065
  8. RELENZA [Suspect]
     Indication: PROPHYLAXIS
     Dosage: 2IUAX PER DAY
     Route: 055
     Dates: start: 20120201

REACTIONS (1)
  - HEPATITIS C [None]
